FAERS Safety Report 6274454-2 (Version None)
Quarter: 2009Q3

REPORT INFORMATION
  Report Type: 
  Country: None (occurrence: None)
  Receive Date: 20090716
  Receipt Date: 20090706
  Transmission Date: 20100115
  Serious: Yes (Hospitalization)
  Sender: FDA-Public Use
  Company Number: 2009-200160-NL

PATIENT
  Sex: Female

DRUGS (1)
  1. NUVARING [Suspect]
     Indication: CONTRACEPTION
     Dates: start: 20060801, end: 20090501

REACTIONS (4)
  - ANXIETY [None]
  - PULMONARY EMBOLISM [None]
  - SLEEP DISORDER [None]
  - STRESS [None]
